FAERS Safety Report 9688566 (Version 1)
Quarter: 2013Q4

REPORT INFORMATION
  Report Type: Spontaneous
  Country: DK (occurrence: DE)
  Receive Date: 20131114
  Receipt Date: 20131114
  Transmission Date: 20140711
  Serious: Yes (Other)
  Sender: FDA-Public Use
  Company Number: DE-FRI-1000051322

PATIENT
  Age: 33 Year
  Sex: Female
  Weight: 51 kg

DRUGS (3)
  1. CITALOPRAM [Suspect]
     Indication: DEPRESSION
     Dosage: 20 MG
     Route: 048
     Dates: start: 20120306
  2. CITALOPRAM [Suspect]
     Dosage: 20 MG
     Route: 048
     Dates: end: 20121129
  3. CENTRUM [Concomitant]
     Indication: PROPHYLAXIS OF NEURAL TUBE DEFECT
     Dosage: 0.2 MG
     Route: 048
     Dates: end: 20121129

REACTIONS (4)
  - Gestational diabetes [Unknown]
  - Premature rupture of membranes [Unknown]
  - Amniotic cavity infection [Unknown]
  - Pregnancy [Unknown]
